FAERS Safety Report 26183691 (Version 1)
Quarter: 2025Q4

REPORT INFORMATION
  Report Type: Report from Study
  Country: CA (occurrence: CA)
  Receive Date: 20251221
  Receipt Date: 20251221
  Transmission Date: 20260118
  Serious: Yes (Hospitalization)
  Sender: ABBVIE
  Company Number: CA-ABBVIE-6597943

PATIENT
  Sex: Female

DRUGS (1)
  1. SKYRIZI [Suspect]
     Active Substance: RISANKIZUMAB-RZAA
     Indication: Crohn^s disease
     Dosage: OBI
     Route: 058
     Dates: start: 20230118

REACTIONS (4)
  - Rheumatoid arthritis [Unknown]
  - Crohn^s disease [Unknown]
  - Pulmonary fibrosis [Unknown]
  - Hand deformity [Unknown]
